FAERS Safety Report 11254366 (Version 2)
Quarter: 2015Q3

REPORT INFORMATION
  Report Type: Spontaneous
  Country: US (occurrence: US)
  Receive Date: 20150709
  Receipt Date: 20150709
  Transmission Date: 20151125
  Serious: Yes (Hospitalization, Other)
  Sender: FDA-Public Use
  Company Number: US-MPIJNJ-2012-02006

PATIENT
  Sex: Female
  Weight: 76.8 kg

DRUGS (1)
  1. VELCADE [Suspect]
     Active Substance: BORTEZOMIB
     Dosage: UNK
     Dates: start: 20100304

REACTIONS (4)
  - Pneumonia [Unknown]
  - Thrombocytopenia [Unknown]
  - Headache [Unknown]
  - Plasma cell myeloma [Unknown]
